FAERS Safety Report 6537703-9 (Version None)
Quarter: 2010Q1

REPORT INFORMATION
  Report Type: 
  Country: None (occurrence: None)
  Receive Date: 20100107
  Receipt Date: 20091223
  Transmission Date: 20100710
  Serious: Yes (Other)
  Sender: FDA-Public Use
  Company Number: 08-AUR-04143

PATIENT
  Age: 59 Year
  Sex: Male

DRUGS (3)
  1. SIMVASTATIN [Suspect]
  2. LISINOPRIL [Suspect]
  3. INSULIN [Suspect]

REACTIONS (2)
  - AGGRESSION [None]
  - BLOOD GLUCOSE DECREASED [None]
